FAERS Safety Report 5182254-X (Version None)
Quarter: 2006Q4

REPORT INFORMATION
  Report Type: 
  Country: None (occurrence: None)
  Receive Date: 20061220
  Receipt Date: 20061214
  Transmission Date: 20070319
  Serious: Yes (Life-Threatening)
  Sender: FDA-Public Use
  Company Number: 2006AP06022

PATIENT
  Age: 60 Year
  Sex: Female

DRUGS (1)
  1. TENORMIN [Suspect]
     Dosage: TOOK 30 TABLETS
     Route: 048
     Dates: start: 20061111, end: 20061111

REACTIONS (4)
  - DRUG TOXICITY [None]
  - HYPOTENSION [None]
  - INTENTIONAL OVERDOSE [None]
  - SUICIDE ATTEMPT [None]
